FAERS Safety Report 22600580 (Version 4)
Quarter: 2024Q1

REPORT INFORMATION
  Report Type: Report from Study
  Country: PH (occurrence: PH)
  Receive Date: 20230614
  Receipt Date: 20240318
  Transmission Date: 20240410
  Serious: Yes (Death, Hospitalization, Other)
  Sender: FDA-Public Use
  Company Number: PH-OTSUKA-2023_015707

PATIENT
  Age: 51 Year
  Sex: Female

DRUGS (4)
  1. TOLVAPTAN [Suspect]
     Active Substance: TOLVAPTAN
     Indication: Diuretic therapy
     Dosage: UNK UNK, BIW (ONE-FOURTH TABLET OF 15 MG)
     Route: 048
  2. TOLVAPTAN [Suspect]
     Active Substance: TOLVAPTAN
     Indication: Blood sodium decreased
     Dosage: UNK UNK, BIW (HALF TABLET OF 15 MG)
     Route: 048
     Dates: start: 202101
  3. TOLVAPTAN [Suspect]
     Active Substance: TOLVAPTAN
     Dosage: UNK UNK, BID (HALF TABLET OF 15 MG)
     Route: 048
     Dates: end: 20231101
  4. 3M CAVILON ANTIFUNGAL [Concomitant]
     Active Substance: MICONAZOLE NITRATE
     Indication: Product used for unknown indication
     Dosage: UNK
     Route: 065

REACTIONS (12)
  - Cardiac disorder [Fatal]
  - Rheumatic heart disease [Unknown]
  - Abdominal distension [Recovering/Resolving]
  - Hypervolaemia [Recovering/Resolving]
  - Hypervolaemia [Unknown]
  - Abdominal distension [Recovering/Resolving]
  - Abdominal distension [Recovering/Resolving]
  - Peripheral swelling [Recovering/Resolving]
  - Inappropriate schedule of product administration [Unknown]
  - Underdose [Unknown]
  - Wrong technique in product usage process [Unknown]
  - Product use in unapproved indication [Unknown]

NARRATIVE: CASE EVENT DATE: 20230531
